FAERS Safety Report 16467469 (Version 1)
Quarter: 2019Q2

REPORT INFORMATION
  Report Type: Spontaneous
  Country: GB (occurrence: GB)
  Receive Date: 20190624
  Receipt Date: 20190624
  Transmission Date: 20190711
  Serious: Yes (Other)
  Sender: FDA-Public Use
  Company Number: GB-AUROBINDO-AUR-APL-2019-034453

PATIENT

DRUGS (6)
  1. EFAVIRENZ. [Suspect]
     Active Substance: EFAVIRENZ
     Indication: ANTIRETROVIRAL THERAPY
     Dosage: UNK
     Route: 065
  2. ABACAVIR+LAMIVUDINE [Suspect]
     Active Substance: ABACAVIR SULFATE\LAMIVUDINE
     Indication: ANTIRETROVIRAL THERAPY
     Dosage: UNK
     Route: 065
  3. PYRIMETHAMINE [Suspect]
     Active Substance: PYRIMETHAMINE
     Dosage: 50 MILLIGRAM, QWK
     Route: 065
  4. PYRIMETHAMINE [Suspect]
     Active Substance: PYRIMETHAMINE
     Indication: TOXOPLASMOSIS PROPHYLAXIS
     Dosage: 75 MILLIGRAM, QD
     Route: 065
  5. DAPSONE. [Suspect]
     Active Substance: DAPSONE
     Indication: TOXOPLASMOSIS PROPHYLAXIS
     Dosage: 100 MILLIGRAM, QD
     Route: 065
  6. CALCIUM FOLINATE [Suspect]
     Active Substance: LEUCOVORIN CALCIUM
     Indication: TOXOPLASMOSIS PROPHYLAXIS
     Dosage: 15 MILLIGRAM, QD
     Route: 065

REACTIONS (4)
  - C-reactive protein increased [Recovered/Resolved]
  - Alanine aminotransferase increased [Recovered/Resolved]
  - Maternal exposure during pregnancy [Recovered/Resolved]
  - Pyrexia [Recovered/Resolved]
